FAERS Safety Report 9227278 (Version 1)
Quarter: 2013Q2

REPORT INFORMATION
  Report Type: Spontaneous
  Country: US (occurrence: None)
  Receive Date: 20130411
  Receipt Date: 20130411
  Transmission Date: 20140414
  Serious: No
  Sender: FDA-Public Use
  Company Number: None

PATIENT
  Age: 61 Year
  Sex: Female

DRUGS (1)
  1. PEGASYS [Suspect]
     Dosage: INJECT 180 MCG (0.5ML) SUBCUTANEOUSLY EVERY WEEK
     Route: 058

REACTIONS (6)
  - Diabetes mellitus [None]
  - Hypertension [None]
  - Hypoaesthesia [None]
  - Hypoaesthesia [None]
  - Insomnia [None]
  - Blister [None]
